FAERS Safety Report 20935629 (Version 1)
Quarter: 2022Q2

REPORT INFORMATION
  Report Type: Report from Study
  Country: CA (occurrence: CA)
  Receive Date: 20220609
  Receipt Date: 20220609
  Transmission Date: 20220721
  Serious: Yes (Death)
  Sender: FDA-Public Use
  Company Number: CA-NOVARTISPH-NVSC2019CA019099

PATIENT
  Sex: Female

DRUGS (1)
  1. GLEEVEC [Suspect]
     Active Substance: IMATINIB MESYLATE
     Indication: Gastrointestinal stromal tumour
     Dosage: 400 MG, QD
     Route: 048
     Dates: start: 20190802

REACTIONS (11)
  - Death [Fatal]
  - Bronchitis [Unknown]
  - Eye pruritus [Unknown]
  - Nausea [Unknown]
  - Headache [Unknown]
  - Herpes zoster [Unknown]
  - Illness [Unknown]
  - Pain [Unknown]
  - Blister [Recovering/Resolving]
  - Eye swelling [Not Recovered/Not Resolved]
  - Diarrhoea [Recovering/Resolving]

NARRATIVE: CASE EVENT DATE: 20190101
